FAERS Safety Report 17544639 (Version 1)
Quarter: 2020Q1

REPORT INFORMATION
  Report Type: Spontaneous
  Country: US (occurrence: US)
  Receive Date: 20200316
  Receipt Date: 20200316
  Transmission Date: 20200409
  Serious: No
  Sender: FDA-Public Use
  Company Number: US-PFIZER INC-2020107239

PATIENT
  Age: 85 Year
  Sex: Female
  Weight: 55.34 kg

DRUGS (1)
  1. LYRICA [Suspect]
     Active Substance: PREGABALIN
     Indication: FIBROMYALGIA
     Dosage: 75 MG, UNK
     Dates: start: 20200219

REACTIONS (6)
  - Balance disorder [Unknown]
  - Visual impairment [Unknown]
  - Somnolence [Unknown]
  - Lip swelling [Unknown]
  - Swelling [Unknown]
  - Swelling face [Unknown]
